FAERS Safety Report 11415659 (Version 1)
Quarter: 2015Q3

REPORT INFORMATION
  Report Type: Spontaneous
  Country: US (occurrence: None)
  Receive Date: 20150824
  Receipt Date: 20150824
  Transmission Date: 20151125
  Serious: Yes (Disabling)
  Sender: FDA-Public Use
  Company Number: None

PATIENT
  Age: 32 Year
  Sex: Female
  Weight: 59.42 kg

DRUGS (10)
  1. AMPHETAMINE SALT [Suspect]
     Active Substance: AMPHETAMINE ASPARTATE\AMPHETAMINE SULFATE\DEXTROAMPHETAMINE SACCHARATE\DEXTROAMPHETAMINE SULFATE
     Indication: SOMNOLENCE
     Route: 048
     Dates: start: 20150821, end: 20150823
  2. AMPHETAMINE SALT [Suspect]
     Active Substance: AMPHETAMINE ASPARTATE\AMPHETAMINE SULFATE\DEXTROAMPHETAMINE SACCHARATE\DEXTROAMPHETAMINE SULFATE
     Indication: DEPRESSION
     Route: 048
     Dates: start: 20150821, end: 20150823
  3. DEXTROAMPHETAMINE ER [Concomitant]
  4. CLONAZEPAM. [Concomitant]
     Active Substance: CLONAZEPAM
  5. BUPROPRION XL [Concomitant]
     Active Substance: BUPROPION
  6. MIXED AMPHETAMINE SALTS [Concomitant]
     Active Substance: AMPHETAMINE ASPARTATE\AMPHETAMINE SULFATE\DEXTROAMPHETAMINE SACCHARATE\DEXTROAMPHETAMINE SULFATE
  7. ZOLPIDEM [Concomitant]
     Active Substance: ZOLPIDEM\ZOLPIDEM TARTRATE
  8. AMPHETAMINE SALT [Suspect]
     Active Substance: AMPHETAMINE ASPARTATE\AMPHETAMINE SULFATE\DEXTROAMPHETAMINE SACCHARATE\DEXTROAMPHETAMINE SULFATE
     Indication: ATTENTION DEFICIT/HYPERACTIVITY DISORDER
     Route: 048
     Dates: start: 20150821, end: 20150823
  9. SERTRALINE [Concomitant]
     Active Substance: SERTRALINE HYDROCHLORIDE
  10. LYRICA [Concomitant]
     Active Substance: PREGABALIN

REACTIONS (10)
  - Disorientation [None]
  - Nausea [None]
  - Product quality issue [None]
  - Somnolence [None]
  - Product substitution issue [None]
  - Drug ineffective [None]
  - Dry mouth [None]
  - Product formulation issue [None]
  - Hypophagia [None]
  - Hypersomnia [None]

NARRATIVE: CASE EVENT DATE: 20150823
